FAERS Safety Report 16156744 (Version 1)
Quarter: 2019Q2

REPORT INFORMATION
  Report Type: Report from Study
  Country: ES (occurrence: ES)
  Receive Date: 20190404
  Receipt Date: 20190404
  Transmission Date: 20190711
  Serious: Yes (Hospitalization)
  Sender: FDA-Public Use
  Company Number: ES-ACCORD-117324

PATIENT
  Age: 62 Year
  Sex: Male
  Weight: 63 kg

DRUGS (17)
  1. NOLOTIL [Concomitant]
     Indication: TUMOUR PAIN
     Dosage: STRENGTH: 575 MG, PRN
     Route: 048
     Dates: start: 20150731, end: 20151104
  2. PRIMPERAN [Concomitant]
     Active Substance: METOCLOPRAMIDE HYDROCHLORIDE
     Indication: PROPHYLAXIS OF NAUSEA AND VOMITING
     Dosage: 30 MG DAILY, PRN
     Route: 042
     Dates: start: 20150912, end: 20150924
  3. ESOMEPRAZOLE/ESOMEPRAZOLE MAGNESIUM/ESOMEPRAZOLE SODIUM [Concomitant]
     Indication: PROPHYLAXIS
     Dosage: 20 MG, QD (1X DAY)
     Route: 048
     Dates: start: 20150731, end: 20150924
  4. SIMVASTATIN. [Concomitant]
     Active Substance: SIMVASTATIN
     Indication: HYPERCHOLESTEROLAEMIA
     Dosage: 10 MG, QD
     Route: 048
     Dates: start: 20150731, end: 20151112
  5. ALOPURINOL [Concomitant]
     Active Substance: ALLOPURINOL
     Indication: HYPERURICAEMIA
     Dosage: 100 MG, QOD (1 X 2 DAY)
     Route: 048
     Dates: start: 20150731, end: 20151112
  6. PARACETAMOL [Concomitant]
     Active Substance: ACETAMINOPHEN
     Indication: TRANSAMINASES INCREASED
     Dosage: 1 G, TID
     Route: 048
     Dates: start: 20150912, end: 20150916
  7. SEVREDOL [Concomitant]
     Active Substance: MORPHINE
     Indication: TUMOUR PAIN
     Dosage: 10 MG, PRN (AS NEEDED)
     Route: 048
     Dates: start: 20150731, end: 20160216
  8. FOSAPREPITANT DIMEGLUMINE. [Concomitant]
     Active Substance: FOSAPREPITANT DIMEGLUMINE
     Indication: PREMEDICATION
     Dosage: 150 MG, QW
     Route: 042
     Dates: start: 20150814, end: 20151228
  9. PNEUMOCOCCAL VACCINE POLYVALENT NOS [Suspect]
     Active Substance: PNEUMOCOCCAL VACCINE POLYVALENT
     Indication: PROPHYLAXIS
     Dosage: 1 DF
     Route: 030
     Dates: start: 20150923, end: 20150923
  10. PREDNISONE. [Concomitant]
     Active Substance: PREDNISONE
     Indication: TRANSAMINASES INCREASED
     Dosage: 30 MG, QD
     Route: 042
     Dates: start: 20150912, end: 20150930
  11. FENTANYL/FENTANYL CITRATE [Concomitant]
     Indication: TUMOUR PAIN
     Dosage: 12 MCG, QOD (1 X 2 DAY)
     Route: 062
     Dates: start: 20150731, end: 20150924
  12. METOCLOPRAMIDE. [Concomitant]
     Active Substance: METOCLOPRAMIDE
     Indication: PROPHYLAXIS OF NAUSEA AND VOMITING
     Dosage: 30 MG, PRN
     Route: 048
     Dates: start: 20150814, end: 20151224
  13. FLUOROURACIL. [Suspect]
     Active Substance: FLUOROURACIL
     Indication: SQUAMOUS CELL CARCINOMA OF HEAD AND NECK
     Dosage: 1000 MG/M2, CONTINUOUS FROM DAY 1 TO DAY 4, Q3W
     Route: 042
     Dates: start: 20150814, end: 20150817
  14. PEMBROLIZUMAB. [Suspect]
     Active Substance: PEMBROLIZUMAB
     Indication: SQUAMOUS CELL CARCINOMA OF HEAD AND NECK
     Dosage: 200 MG, Q3W
     Route: 042
     Dates: start: 20150814
  15. DEXAMETHASONE. [Concomitant]
     Active Substance: DEXAMETHASONE
     Indication: PREMEDICATION
     Dosage: 4 MG, ONCE
     Route: 042
     Dates: start: 20150814, end: 20151228
  16. ONDANSETRON [Concomitant]
     Active Substance: ONDANSETRON
     Indication: PREMEDICATION
     Dosage: 16 MG, ONCE
     Route: 042
     Dates: start: 20150814, end: 20151228
  17. CISPLATIN. [Suspect]
     Active Substance: CISPLATIN
     Indication: SQUAMOUS CELL CARCINOMA OF HEAD AND NECK
     Dosage: 100 MG/M2, Q3W
     Route: 042
     Dates: start: 20150814, end: 20150814

REACTIONS (1)
  - Type III immune complex mediated reaction [Recovered/Resolved]

NARRATIVE: CASE EVENT DATE: 20150924
